FAERS Safety Report 8113461-1 (Version None)
Quarter: 2012Q1

REPORT INFORMATION
  Report Type: 
  Country: None (occurrence: None)
  Receive Date: 20120203
  Receipt Date: 20120128
  Transmission Date: 20120608
  Serious: Yes (Other)
  Sender: FDA-Public Use
  Company Number: US-ABBOTT-12P-163-0899541-00

PATIENT
  Sex: Male
  Weight: 97.156 kg

DRUGS (3)
  1. DEPAKOTE ER [Suspect]
     Indication: CONVULSION
  2. DEPAKOTE ER [Suspect]
  3. DEPAKOTE ER [Suspect]
     Dosage: 1 500, 250 + 125MG AM, 1 500 + 250MG PM

REACTIONS (11)
  - SENSORY DISTURBANCE [None]
  - RECTAL TENESMUS [None]
  - IRRITABLE BOWEL SYNDROME [None]
  - FLATULENCE [None]
  - GROIN PAIN [None]
  - WEIGHT INCREASED [None]
  - GASTROINTESTINAL HYPERMOTILITY [None]
  - JOINT INSTABILITY [None]
  - GASTROINTESTINAL SOUNDS ABNORMAL [None]
  - ABDOMINAL PAIN [None]
  - GASTROINTESTINAL PAIN [None]
